FAERS Safety Report 8415546-9 (Version None)
Quarter: 2012Q2

REPORT INFORMATION
  Report Type: 
  Country: None (occurrence: None)
  Receive Date: 20120530
  Receipt Date: 20120516
  Transmission Date: 20120825
  Serious: Yes (Hospitalization)
  Sender: FDA-Public Use
  Company Number: 201205000026

PATIENT
  Age: 81 Year
  Sex: Female

DRUGS (6)
  1. INOMAX [Suspect]
     Indication: PULMONARY HYPERTENSION
     Dosage: 80 PPM, CONTINUOUS, INHALATION, 60 PPM, CONTINUOUS, INHALATION,
     Route: 055
     Dates: start: 20120515, end: 20120515
  2. INOMAX [Suspect]
     Indication: CARDIAC OPERATION
     Dosage: 80 PPM, CONTINUOUS, INHALATION, 60 PPM, CONTINUOUS, INHALATION,
     Route: 055
     Dates: start: 20120515, end: 20120515
  3. INOMAX [Suspect]
     Indication: PULMONARY HYPERTENSION
     Dosage: 80 PPM, CONTINUOUS, INHALATION, 60 PPM, CONTINUOUS, INHALATION,
     Route: 055
     Dates: start: 20120513, end: 20120515
  4. INOMAX [Suspect]
     Indication: CARDIAC OPERATION
     Dosage: 80 PPM, CONTINUOUS, INHALATION, 60 PPM, CONTINUOUS, INHALATION,
     Route: 055
     Dates: start: 20120513, end: 20120515
  5. INOMAX [Suspect]
     Indication: PULMONARY HYPERTENSION
     Dosage: 80 PPM, CONTINUOUS, INHALATION, 60 PPM, CONTINUOUS, INHALATION,
     Route: 055
     Dates: start: 20120515, end: 20120521
  6. INOMAX [Suspect]
     Indication: CARDIAC OPERATION
     Dosage: 80 PPM, CONTINUOUS, INHALATION, 60 PPM, CONTINUOUS, INHALATION,
     Route: 055
     Dates: start: 20120515, end: 20120521

REACTIONS (2)
  - VENTRICULAR FIBRILLATION [None]
  - CARDIO-RESPIRATORY ARREST [None]
